FAERS Safety Report 8596201 (Version 4)
Quarter: 2014Q1

REPORT INFORMATION
  Report Type: Spontaneous
  Country: US (occurrence: US)
  Receive Date: 20120605
  Receipt Date: 20140113
  Transmission Date: 20141002
  Serious: Yes (Hospitalization, Disabling)
  Sender: FDA-Public Use
  Company Number: US-ASTRAZENECA-2012SE35681

PATIENT
  Age: 60 Year
  Sex: Female
  Weight: 113.4 kg

DRUGS (33)
  1. NEXIUM [Suspect]
     Indication: GASTROOESOPHAGEAL REFLUX DISEASE
     Route: 048
     Dates: start: 2007
  2. NEXIUM [Suspect]
     Indication: GASTROOESOPHAGEAL REFLUX DISEASE
     Route: 048
     Dates: start: 2007
  3. NEXIUM [Suspect]
     Indication: HIATUS HERNIA
     Route: 048
     Dates: start: 2007
  4. NEXIUM [Suspect]
     Indication: GASTROOESOPHAGEAL REFLUX DISEASE
     Route: 048
  5. NEXIUM [Suspect]
     Indication: GASTROOESOPHAGEAL REFLUX DISEASE
     Route: 048
  6. NEXIUM [Suspect]
     Indication: HIATUS HERNIA
     Route: 048
  7. NEXIUM [Suspect]
     Indication: GASTROOESOPHAGEAL REFLUX DISEASE
     Route: 048
     Dates: start: 20100122
  8. NEXIUM [Suspect]
     Indication: GASTROOESOPHAGEAL REFLUX DISEASE
     Route: 048
     Dates: start: 20100122
  9. NEXIUM [Suspect]
     Indication: HIATUS HERNIA
     Route: 048
     Dates: start: 20100122
  10. NEXIUM [Suspect]
     Indication: GASTROOESOPHAGEAL REFLUX DISEASE
     Route: 048
     Dates: start: 201207
  11. NEXIUM [Suspect]
     Indication: GASTROOESOPHAGEAL REFLUX DISEASE
     Route: 048
     Dates: start: 201207
  12. NEXIUM [Suspect]
     Indication: HIATUS HERNIA
     Route: 048
     Dates: start: 201207
  13. PRILOSEC OTC [Suspect]
     Dosage: OCCASIONALLY 1-2 TIMES FOR SEVERAL YEARS
     Route: 048
  14. ZOLOFT/SERTRALINE HCL [Concomitant]
     Indication: DEPRESSION
     Dates: start: 20101220
  15. ZOLOFT/SERTRALINE HCL [Concomitant]
     Indication: NEURALGIA
     Dates: start: 20101220
  16. TOPROL [Concomitant]
     Indication: HYPERTENSION
     Route: 048
  17. COZAAR [Concomitant]
     Indication: HYPERTENSION
  18. HYDROCHLOROTHIAZIDE [Concomitant]
     Indication: HYPERTENSION
  19. HYDROCHLOROTHIAZIDE [Concomitant]
     Indication: FLUID RETENTION
  20. SYNTHROID/LEVOTHYROXINE SODIUM [Concomitant]
     Indication: HYPOTHYROIDISM
  21. CELEBREX [Concomitant]
     Indication: INFLAMMATION
  22. VITAMIN D [Concomitant]
  23. VITAMIN B12 [Concomitant]
  24. CRESTOR [Concomitant]
     Route: 048
     Dates: start: 201303
  25. LIPITOR [Concomitant]
     Dates: start: 20111114
  26. GABAPENTIN [Concomitant]
     Dates: start: 20110713
  27. PEPCID [Concomitant]
  28. PROVIGIL [Concomitant]
  29. PROVIGIL [Concomitant]
  30. METHYLPHENIDATE HCL [Concomitant]
     Dates: start: 20111122
  31. FLUCONAZOLE [Concomitant]
     Dates: start: 20130222
  32. LASIX [Concomitant]
  33. CYMBALTA [Concomitant]

REACTIONS (16)
  - Lower limb fracture [Unknown]
  - Fall [Unknown]
  - Joint injury [Unknown]
  - Head injury [Unknown]
  - Tibia fracture [Unknown]
  - Fibula fracture [Unknown]
  - Muscular weakness [Unknown]
  - Osteoporosis [Unknown]
  - Multiple fractures [Unknown]
  - Impaired healing [Unknown]
  - Mineral metabolism disorder [Unknown]
  - Osteoarthritis [Unknown]
  - Scoliosis [Unknown]
  - Gait disturbance [Unknown]
  - Skin disorder [Unknown]
  - Intervertebral disc degeneration [Unknown]
